FAERS Safety Report 7338578-0 (Version None)
Quarter: 2011Q1

REPORT INFORMATION
  Report Type: 
  Country: None (occurrence: None)
  Receive Date: 20110308
  Receipt Date: 20110223
  Transmission Date: 20110831
  Serious: Yes (Hospitalization)
  Sender: FDA-Public Use
  Company Number: US-ELI_LILLY_AND_COMPANY-US201102007043

PATIENT
  Age: 47 Year
  Sex: Male

DRUGS (3)
  1. CYMBALTA [Suspect]
     Dosage: 30 MG, DAILY (1/D)
  2. OLANZAPINE [Concomitant]
     Indication: PATIENT RESTRAINT
     Dosage: 15 MG, DAILY (1/D)
  3. LORAZEPAM [Concomitant]
     Indication: PATIENT RESTRAINT

REACTIONS (1)
  - ALCOHOL POISONING [None]
